FAERS Safety Report 18415252 (Version 1)
Quarter: 2020Q4

REPORT INFORMATION
  Report Type: Spontaneous
  Country: FR (occurrence: FR)
  Receive Date: 20201022
  Receipt Date: 20201022
  Transmission Date: 20210114
  Serious: Yes (Other)
  Sender: FDA-Public Use
  Company Number: FR-TEVA-2020-FR-1840233

PATIENT
  Age: 57 Year
  Sex: Male
  Weight: 72 kg

DRUGS (1)
  1. AIROMIR [Suspect]
     Active Substance: ALBUTEROL SULFATE
     Indication: RESPIRATORY FAILURE
     Dosage: 2 TO 3 TIMES A DAY
     Route: 045
     Dates: start: 20200715, end: 20200717

REACTIONS (2)
  - Headache [Recovered/Resolved]
  - Duodenal ulcer [Recovered/Resolved]

NARRATIVE: CASE EVENT DATE: 20200716
